FAERS Safety Report 22308819 (Version 2)
Quarter: 2023Q2

REPORT INFORMATION
  Report Type: Other
  Country: US (occurrence: None)
  Receive Date: 20230511
  Receipt Date: 20230516
  Transmission Date: 20230722
  Serious: No
  Sender: FDA-Public Use
  Company Number: US-ROCHE-3347556

PATIENT
  Age: 42 Year
  Sex: Female
  Weight: 124.85 kg

DRUGS (13)
  1. OCREVUS [Suspect]
     Active Substance: OCRELIZUMAB
     Indication: Relapsing-remitting multiple sclerosis
     Route: 042
     Dates: start: 202211
  2. OCREVUS [Suspect]
     Active Substance: OCRELIZUMAB
     Dosage: STARTED LAST YEAR MAYBE -MAR-2022 OR -MAY-2022.
     Route: 042
  3. ERGOCALCIFEROL [Concomitant]
     Active Substance: ERGOCALCIFEROL
     Indication: Vitamin D decreased
     Dosage: STARTED ABOUT 2 YEARS AGO. ;ONGOING: YES
     Route: 048
  4. GABAPENTIN [Concomitant]
     Active Substance: GABAPENTIN
     Indication: Neuralgia
     Dosage: STARTED ALMOST 1 YEAR AGO. ;ONGOING: YES
     Route: 048
  5. CYANOCOBALAMIN [Concomitant]
     Active Substance: CYANOCOBALAMIN
     Indication: Vitamin B complex deficiency
     Dosage: STARTED ABOUT 2 YEARS AGO. ;ONGOING: YES
     Route: 030
  6. BACLOFEN [Concomitant]
     Active Substance: BACLOFEN
     Indication: Muscle spasms
     Dosage: STATE ABOUT 6 MONTHS AGO MAYBE LONGER. TAKES AT BEDTIME. ;ONGOING: YES
     Route: 048
  7. ADVIL MIGRAINE [Concomitant]
     Active Substance: IBUPROFEN
     Indication: Migraine
     Dosage: TAKES AS NEEDED. STARTED FOR A LONG TIME AGO. ;ONGOING: YES
     Route: 048
  8. CANNABIS SATIVA SUBSP. INDICA TOP [Concomitant]
     Active Substance: CANNABIS SATIVA SUBSP. INDICA TOP
     Indication: Nausea
     Dosage: AS NEEDED IF PAIN LEVEL IS LOW. STARTED A FEW YEARS AGO. ;ONGOING: YES
     Route: 048
  9. CANNABIS SATIVA SUBSP. INDICA TOP [Concomitant]
     Active Substance: CANNABIS SATIVA SUBSP. INDICA TOP
     Indication: Vomiting
     Dosage: AS NEEDED IF PAIN LEVEL IS HIGH. STARTED A FEW YEARS AGO. ;ONGOING: YES
     Route: 048
  10. CANNABIS SATIVA SUBSP. INDICA TOP [Concomitant]
     Active Substance: CANNABIS SATIVA SUBSP. INDICA TOP
     Indication: Migraine
  11. CANNABIS SATIVA SUBSP. INDICA TOP [Concomitant]
     Active Substance: CANNABIS SATIVA SUBSP. INDICA TOP
     Indication: Pain
  12. CANNABIS SATIVA SUBSP. INDICA TOP [Concomitant]
     Active Substance: CANNABIS SATIVA SUBSP. INDICA TOP
     Indication: Initial insomnia
  13. ALBUTEROL SULFATE [Concomitant]
     Active Substance: ALBUTEROL SULFATE
     Indication: Asthma
     Dosage: 180 MCG, TAKES 2 PUFFS 3 TO 4 TIMES PER DAY. STARTED A LONG TIME AGO. ;ONGOING: YES
     Route: 055

REACTIONS (4)
  - Pain [Not Recovered/Not Resolved]
  - Panic attack [Recovered/Resolved]
  - COVID-19 [Not Recovered/Not Resolved]
  - Influenza [Recovered/Resolved]

NARRATIVE: CASE EVENT DATE: 20221101
